FAERS Safety Report 9913406 (Version 1)
Quarter: 2014Q1

REPORT INFORMATION
  Report Type: Spontaneous
  Country: US (occurrence: None)
  Receive Date: 20140219
  Receipt Date: 20140219
  Transmission Date: 20141002
  Serious: Yes (Hospitalization)
  Sender: FDA-Public Use
  Company Number: None

PATIENT
  Age: 62 Year
  Sex: Male

DRUGS (18)
  1. LOSARTAN [Suspect]
     Indication: HYPERTENSION
     Dosage: 1 PILL QD ORAL
     Route: 048
  2. COUMADIN [Concomitant]
  3. CLONIDINE [Concomitant]
  4. LABETALOL [Concomitant]
  5. TRAZODONE [Concomitant]
  6. RISPERIDONE [Concomitant]
  7. NEPHRO-VITE [Concomitant]
  8. NICOTINE GUM [Concomitant]
  9. RENAGEL [Concomitant]
  10. HYDRALAZINE [Concomitant]
  11. ISOSORBIDE MONONITRATE [Concomitant]
  12. ESCITALOPRAM [Concomitant]
  13. DOCUSATE [Concomitant]
  14. DILTIAZEM [Concomitant]
  15. ARANESP [Concomitant]
  16. AMIODARONE [Concomitant]
  17. RISPERIDONE [Concomitant]
  18. LACTULOSE [Concomitant]

REACTIONS (5)
  - Face oedema [None]
  - No therapeutic response [None]
  - Fluid overload [None]
  - Pneumonia [None]
  - Drug dose omission [None]
